FAERS Safety Report 15557983 (Version 1)
Quarter: 2018Q4

REPORT INFORMATION
  Report Type: Spontaneous
  Country: US (occurrence: US)
  Receive Date: 20181027
  Receipt Date: 20181027
  Transmission Date: 20190205
  Serious: No
  Sender: FDA-Public Use
  Company Number: US-009507513-1810USA006012

PATIENT
  Age: 27 Year
  Sex: Female
  Weight: 100.23 kg

DRUGS (2)
  1. OCREVUS [Concomitant]
     Active Substance: OCRELIZUMAB
  2. NEXPLANON [Suspect]
     Active Substance: ETONOGESTREL
     Indication: CONTRACEPTION
     Dosage: 3 YEARS, RIGHT ARM-IMPLANT
     Route: 059
     Dates: start: 20180919

REACTIONS (3)
  - Implant site pain [Not Recovered/Not Resolved]
  - Nausea [Not Recovered/Not Resolved]
  - Implant site hypersensitivity [Not Recovered/Not Resolved]

NARRATIVE: CASE EVENT DATE: 20180919
